FAERS Safety Report 14912449 (Version 9)
Quarter: 2019Q3

REPORT INFORMATION
  Report Type: Report from Study
  Country: KR (occurrence: KR)
  Receive Date: 20180518
  Receipt Date: 20190928
  Transmission Date: 20191004
  Serious: Yes (Hospitalization)
  Sender: FDA-Public Use
  Company Number: KR-ROCHE-2123724

PATIENT
  Age: 39 Year
  Sex: Female
  Weight: 57 kg

DRUGS (48)
  1. HM 95573 [Suspect]
     Active Substance: INVESTIGATIONAL PRODUCT
     Route: 048
     Dates: start: 20180501
  2. DEXTROSE. [Concomitant]
     Active Substance: DEXTROSE
     Route: 042
     Dates: start: 20180420, end: 20180427
  3. MOTILITONE [Concomitant]
     Active Substance: HERBALS
     Route: 048
     Dates: start: 20180425, end: 20180427
  4. COBIMETINIB. [Suspect]
     Active Substance: COBIMETINIB
     Route: 048
     Dates: start: 20180503, end: 20180509
  5. HM 95573 [Suspect]
     Active Substance: INVESTIGATIONAL PRODUCT
     Route: 048
     Dates: start: 20180418
  6. MORPHINE SULFATE. [Concomitant]
     Active Substance: MORPHINE SULFATE
     Route: 042
     Dates: start: 20180422, end: 20180422
  7. MORPHINE SULFATE. [Concomitant]
     Active Substance: MORPHINE SULFATE
     Route: 042
     Dates: start: 20180420, end: 20180522
  8. CURAN [Concomitant]
     Active Substance: RANITIDINE HYDROCHLORIDE
     Route: 042
     Dates: start: 20180420, end: 20180424
  9. DUROGESIC [Concomitant]
     Active Substance: FENTANYL
     Route: 062
     Dates: start: 20180426
  10. IRCODON [Concomitant]
     Active Substance: OXYCODONE HYDROCHLORIDE
     Route: 048
     Dates: start: 20180422, end: 20180422
  11. CIPROFLOXACIN. [Concomitant]
     Active Substance: CIPROFLOXACIN
     Route: 042
     Dates: start: 20180419, end: 20180419
  12. DENOGAN [Concomitant]
     Active Substance: PROPACETAMOL HYDROCHLORIDE
     Route: 042
     Dates: start: 20180418, end: 20180619
  13. DUROGESIC [Concomitant]
     Active Substance: FENTANYL
     Dosage: 4.2 MG/ 25 MCG/HR
     Route: 062
     Dates: start: 20180420, end: 20180420
  14. DUROGESIC [Concomitant]
     Active Substance: FENTANYL
     Dosage: 4.2 MG/25MCG/HR
     Route: 062
     Dates: start: 20180423, end: 20180423
  15. DUPHALAC EASY [Concomitant]
     Indication: CONSTIPATION
     Route: 048
     Dates: start: 20180423, end: 20180424
  16. COBIMETINIB. [Suspect]
     Active Substance: COBIMETINIB
     Indication: RECTAL CANCER
     Dosage: MOST RECENT DOSE DATE WAS ON 01/MAY/2018
     Route: 048
     Dates: start: 20180418
  17. COBIMETINIB. [Suspect]
     Active Substance: COBIMETINIB
     Route: 048
     Dates: start: 20180501
  18. MORPHINE SULFATE. [Concomitant]
     Active Substance: MORPHINE SULFATE
     Route: 042
     Dates: start: 20180420, end: 20180420
  19. MORPHINE SULFATE. [Concomitant]
     Active Substance: MORPHINE SULFATE
     Route: 042
     Dates: start: 20180421, end: 20180422
  20. NORMAL SALINE [Concomitant]
     Active Substance: SODIUM CHLORIDE
     Route: 042
     Dates: start: 20180420, end: 20180423
  21. TYLENOL 8HR [Concomitant]
     Active Substance: ACETAMINOPHEN
     Route: 048
     Dates: start: 20180421, end: 20180421
  22. DUPHALAC EASY [Concomitant]
     Route: 048
     Dates: start: 20180424, end: 20180427
  23. SMOFLIPID [Concomitant]
     Active Substance: FISH OIL\MEDIUM-CHAIN TRIGLYCERIDES\OLIVE OIL\SOYBEAN OIL
     Route: 042
     Dates: start: 20180426, end: 20180426
  24. MEROPEN [MEROPENEM] [Concomitant]
     Active Substance: MEROPENEM
     Indication: SEPSIS
     Route: 042
     Dates: start: 20180420, end: 20180427
  25. MEROPEN [MEROPENEM] [Concomitant]
     Active Substance: MEROPENEM
     Route: 048
     Dates: start: 20180419
  26. FLIVAS [Concomitant]
     Active Substance: NAFTOPIDIL
     Route: 048
     Dates: start: 20180420, end: 20180426
  27. NORZYME [Concomitant]
     Route: 048
     Dates: start: 20180425, end: 20180427
  28. GASTER [FAMOTIDINE] [Concomitant]
     Indication: GASTROOESOPHAGEAL REFLUX DISEASE
     Route: 048
     Dates: start: 20180405
  29. ULTRACET [Concomitant]
     Active Substance: ACETAMINOPHEN\TRAMADOL HYDROCHLORIDE
     Indication: ABDOMINAL PAIN
     Route: 048
     Dates: start: 20180405, end: 20180409
  30. CIPROFLOXACIN. [Concomitant]
     Active Substance: CIPROFLOXACIN
     Indication: URINARY TRACT INFECTION
     Route: 042
     Dates: start: 20180407, end: 20180409
  31. CIPROFLOXACIN. [Concomitant]
     Active Substance: CIPROFLOXACIN
     Indication: URINARY TRACT INFECTION
     Route: 048
     Dates: start: 20180405, end: 20180419
  32. DUROGESIC [Concomitant]
     Active Substance: FENTANYL
     Dosage: 2.1 MG/25 MCG/HR
     Route: 062
     Dates: start: 20180423, end: 20180423
  33. DUROGESIC [Concomitant]
     Active Substance: FENTANYL
     Dosage: 2.1 MG/25 MCG/HR
     Route: 062
     Dates: start: 20180426, end: 20180426
  34. IRCODON [Concomitant]
     Active Substance: OXYCODONE HYDROCHLORIDE
     Route: 048
     Dates: start: 20180421, end: 20180421
  35. TARGIN [Concomitant]
     Active Substance: NALOXONE HYDROCHLORIDE\OXYCODONE HYDROCHLORIDE
     Route: 048
     Dates: start: 20180417
  36. HM 95573 [Suspect]
     Active Substance: INVESTIGATIONAL PRODUCT
     Indication: RECTAL CANCER
     Route: 048
     Dates: start: 20180503, end: 20180509
  37. MORPHINE SULFATE. [Concomitant]
     Active Substance: MORPHINE SULFATE
     Route: 042
     Dates: start: 20180420, end: 20180420
  38. DENOGAN [Concomitant]
     Active Substance: PROPACETAMOL HYDROCHLORIDE
     Route: 042
     Dates: start: 20180420, end: 20180420
  39. DUROGESIC [Concomitant]
     Active Substance: FENTANYL
     Route: 062
     Dates: start: 20180423
  40. MAGNESIUM OXIDE. [Concomitant]
     Active Substance: MAGNESIUM OXIDE
     Route: 048
     Dates: start: 20180423, end: 20180427
  41. FURTMAN [Concomitant]
     Route: 042
     Dates: start: 20180423, end: 20180423
  42. MORPHINE SULFATE. [Concomitant]
     Active Substance: MORPHINE SULFATE
     Route: 042
     Dates: start: 20180420, end: 20180420
  43. MORPHINE SULFATE. [Concomitant]
     Active Substance: MORPHINE SULFATE
     Route: 042
     Dates: start: 20180419, end: 20180516
  44. CURAN [Concomitant]
     Active Substance: RANITIDINE HYDROCHLORIDE
     Route: 042
     Dates: start: 20180420, end: 20180420
  45. DEXTROSE. [Concomitant]
     Active Substance: DEXTROSE
     Route: 042
     Dates: start: 20180420, end: 20180420
  46. DUROGESIC [Concomitant]
     Active Substance: FENTANYL
     Dosage: 4.2 MG/25 MCG/HR
     Route: 062
     Dates: start: 20180426, end: 20180426
  47. URSA [Concomitant]
     Active Substance: URSODIOL
     Route: 048
     Dates: start: 20180426, end: 20180427
  48. MACPERAN [Concomitant]
     Active Substance: METOCLOPRAMIDE HYDROCHLORIDE
     Indication: DECREASED APPETITE
     Route: 042
     Dates: start: 20180418, end: 20180418

REACTIONS (4)
  - Dyspnoea [Recovered/Resolved]
  - Pyrexia [Recovered/Resolved]
  - Amylase increased [Recovered/Resolved]
  - Lipase increased [Recovered/Resolved]

NARRATIVE: CASE EVENT DATE: 20180502
